FAERS Safety Report 11652435 (Version 1)
Quarter: 2015Q4

REPORT INFORMATION
  Report Type: Other
  Country: US (occurrence: US)
  Receive Date: 20151022
  Receipt Date: 20151022
  Transmission Date: 20160304
  Serious: No
  Sender: FDA-Public Use
  Company Number: US-DEP_07565_2015

PATIENT
  Sex: Male

DRUGS (2)
  1. NUCYNTA ER [Suspect]
     Active Substance: TAPENTADOL HYDROCHLORIDE
     Indication: BREAKTHROUGH PAIN
     Dosage: 250 MG, 3/DAY
     Route: 048
     Dates: end: 201409
  2. NUCYNTA [Suspect]
     Active Substance: TAPENTADOL HYDROCHLORIDE
     Indication: BREAKTHROUGH PAIN
     Dosage: 50 MG, UNK
     Route: 048
     Dates: end: 201409

REACTIONS (6)
  - Pain [Not Recovered/Not Resolved]
  - Unevaluable event [Unknown]
  - Insomnia [Not Recovered/Not Resolved]
  - Incorrect drug administration duration [Unknown]
  - Asthenia [Not Recovered/Not Resolved]
  - Fatigue [Not Recovered/Not Resolved]

NARRATIVE: CASE EVENT DATE: 201409
